FAERS Safety Report 9453513 (Version 2)
Quarter: 2013Q3

REPORT INFORMATION
  Report Type: Spontaneous
  Country: CN (occurrence: CN)
  Receive Date: 20130812
  Receipt Date: 20130925
  Transmission Date: 20140515
  Serious: Yes (Other)
  Sender: FDA-Public Use
  Company Number: CN-PFIZER INC-2013207357

PATIENT
  Age: 30 Year
  Sex: Female

DRUGS (1)
  1. PANTOLOC [Suspect]
     Indication: GASTROINTESTINAL HAEMORRHAGE
     Dosage: 40 MG, DAILY
     Route: 041

REACTIONS (2)
  - Granulocyte count decreased [Recovered/Resolved]
  - Off label use [Unknown]
